FAERS Safety Report 8230725-1 (Version None)
Quarter: 2012Q1

REPORT INFORMATION
  Report Type: 
  Country: None (occurrence: None)
  Receive Date: 20120323
  Receipt Date: 20120319
  Transmission Date: 20120608
  Serious: Yes (Hospitalization, Other)
  Sender: FDA-Public Use
  Company Number: US-TEVA-329047USA

PATIENT
  Age: 4 Year
  Sex: Male

DRUGS (1)
  1. CLONAZEPAM [Suspect]
     Indication: ACCIDENTAL OVERDOSE
     Route: 048

REACTIONS (8)
  - DEPRESSED LEVEL OF CONSCIOUSNESS [None]
  - ATAXIA [None]
  - HYPOTONIA [None]
  - ATRIOVENTRICULAR BLOCK [None]
  - MIOSIS [None]
  - UNRESPONSIVE TO STIMULI [None]
  - ACCIDENTAL OVERDOSE [None]
  - RESPIRATORY DEPRESSION [None]
